FAERS Safety Report 20871586 (Version 2)
Quarter: 2022Q2

REPORT INFORMATION
  Report Type: Spontaneous
  Country: US (occurrence: US)
  Receive Date: 20220525
  Receipt Date: 20220607
  Transmission Date: 20220721
  Serious: No
  Sender: FDA-Public Use
  Company Number: US-UNITED THERAPEUTICS-UNT-2022-010116

PATIENT
  Age: 67 Year
  Sex: Male
  Weight: 75.737 kg

DRUGS (4)
  1. REMODULIN [Suspect]
     Active Substance: TREPROSTINIL
     Indication: Pulmonary arterial hypertension
     Dosage: UNK, CONTINUING
     Route: 058
     Dates: start: 20211103
  2. REMODULIN [Suspect]
     Active Substance: TREPROSTINIL
     Dosage: 0.090 ?G/KG, CONTINUING ( PRE-FILLED WITH 3 ML PER CASSETTE, AT A PUMP RATE OF 42 MCL/HOUR)
     Route: 058
  3. REMODULIN [Suspect]
     Active Substance: TREPROSTINIL
     Dosage: UNK, CONTINUING
     Route: 058
  4. SILDENAFIL [Concomitant]
     Active Substance: SILDENAFIL
     Indication: Product used for unknown indication
     Dosage: UNK
     Route: 065

REACTIONS (6)
  - Infusion site erythema [Unknown]
  - Infusion site swelling [Unknown]
  - Device occlusion [Unknown]
  - Device issue [Unknown]
  - Device leakage [Unknown]
  - Device power source issue [Unknown]

NARRATIVE: CASE EVENT DATE: 20220501
